FAERS Safety Report 7825296-5 (Version None)
Quarter: 2011Q4

REPORT INFORMATION
  Report Type: 
  Country: None (occurrence: None)
  Receive Date: 20111019
  Receipt Date: 20111012
  Transmission Date: 20120403
  Serious: Yes (Hospitalization)
  Sender: FDA-Public Use
  Company Number: US-GLAXOSMITHKLINE-A0949567A

PATIENT
  Age: 59 Year
  Sex: Female
  Weight: 100.2 kg

DRUGS (4)
  1. UNKNOWN [Concomitant]
  2. SERTRALINE HYDROCHLORIDE [Suspect]
     Indication: BIPOLAR DISORDER
     Dosage: 200MG AT NIGHT
     Route: 065
  3. CHANTIX [Suspect]
     Indication: SMOKING CESSATION THERAPY
     Route: 065
  4. PAXIL [Suspect]
     Indication: BIPOLAR DISORDER
     Route: 065

REACTIONS (9)
  - MOOD SWINGS [None]
  - SKIN CHAPPED [None]
  - RASH [None]
  - MALAISE [None]
  - DIARRHOEA [None]
  - DRUG INEFFECTIVE FOR UNAPPROVED INDICATION [None]
  - CHRONIC OBSTRUCTIVE PULMONARY DISEASE [None]
  - EMPHYSEMA [None]
  - ADVERSE EVENT [None]
